FAERS Safety Report 19917711 (Version 2)
Quarter: 2021Q4

REPORT INFORMATION
  Report Type: Spontaneous
  Country: US (occurrence: US)
  Receive Date: 20211005
  Receipt Date: 20211018
  Transmission Date: 20220303
  Serious: Yes (Other)
  Sender: FDA-Public Use
  Company Number: US-SA-SAC20210928000254

PATIENT
  Age: 26 Year
  Sex: Female

DRUGS (1)
  1. CABLIVI [Suspect]
     Active Substance: CAPLACIZUMAB-YHDP
     Indication: Thrombotic microangiopathy
     Dosage: 11 MG, QD
     Route: 058
     Dates: start: 20210723, end: 2021

REACTIONS (8)
  - Pneumonia viral [Unknown]
  - Dyspnoea [Unknown]
  - Chest pain [Unknown]
  - Pyrexia [Unknown]
  - Cough [Unknown]
  - Night sweats [Unknown]
  - Diarrhoea [Unknown]
  - ADAMTS13 activity abnormal [Unknown]

NARRATIVE: CASE EVENT DATE: 20211004
